FAERS Safety Report 8302285-8 (Version None)
Quarter: 2012Q2

REPORT INFORMATION
  Report Type: 
  Country: None (occurrence: None)
  Receive Date: 20120420
  Receipt Date: 20120411
  Transmission Date: 20120825
  Serious: Yes (Other)
  Sender: FDA-Public Use
  Company Number: US-JNJFOC-20120405392

PATIENT
  Sex: Female
  Weight: 77.57 kg

DRUGS (8)
  1. KLONOPIN [Concomitant]
     Indication: NERVOUSNESS
     Route: 048
     Dates: start: 20090101
  2. ASPIRIN [Concomitant]
     Indication: CEREBROVASCULAR ACCIDENT PROPHYLAXIS
     Route: 048
     Dates: start: 20100401
  3. TRAMADOL HYDROCHLORIDE [Concomitant]
     Indication: PAIN
     Route: 048
     Dates: start: 20110101
  4. METHOTREXATE [Concomitant]
     Indication: RHEUMATOID ARTHRITIS
     Route: 058
     Dates: start: 20111201, end: 20120201
  5. REMICADE [Suspect]
     Indication: RHEUMATOID ARTHRITIS
     Route: 042
     Dates: start: 20110101, end: 20120201
  6. PLAVIX [Concomitant]
     Indication: CEREBROVASCULAR ACCIDENT PROPHYLAXIS
     Route: 048
     Dates: start: 20100401
  7. NEXIUM [Concomitant]
     Indication: GASTROOESOPHAGEAL REFLUX DISEASE
     Route: 048
  8. CARDIZEM [Concomitant]
     Indication: HYPERTENSION
     Route: 048
     Dates: start: 20100401

REACTIONS (7)
  - PAIN IN EXTREMITY [None]
  - NASOPHARYNGITIS [None]
  - CATARACT [None]
  - RASH PRURITIC [None]
  - RASH GENERALISED [None]
  - ERYTHEMA [None]
  - HERPES ZOSTER [None]
